FAERS Safety Report 7682670-8 (Version None)
Quarter: 2011Q3

REPORT INFORMATION
  Report Type: 
  Country: None (occurrence: None)
  Receive Date: 20110815
  Receipt Date: 20110531
  Transmission Date: 20111222
  Serious: Yes (Other)
  Sender: FDA-Public Use
  Company Number: US-SHIRE-SPV1-2011-00475

PATIENT
  Sex: Male

DRUGS (5)
  1. SINGULAIR [Concomitant]
     Indication: HYPERSENSITIVITY
     Dosage: UNK, UNKNOWN
     Route: 065
     Dates: start: 20090807, end: 20110201
  2. MULTIVITAMIN                       /00097801/ [Concomitant]
     Indication: SUPPLEMENTATION THERAPY
     Dosage: UNK, UNKNOWN
     Route: 065
     Dates: start: 20080707
  3. ALBUTEROL [Concomitant]
     Indication: ASTHMA
     Dosage: UNK, UNKNOWN
     Route: 065
     Dates: start: 20090807
  4. BUDESONIDE [Concomitant]
     Indication: ASTHMA
     Dosage: UNK, UNKNOWN
     Route: 065
     Dates: start: 20090807
  5. ELAPRASE [Suspect]
     Indication: MUCOPOLYSACCHARIDOSIS II
     Dosage: 24 MG, 1X/WEEK
     Route: 041
     Dates: start: 20061005

REACTIONS (1)
  - EOSINOPHIL COUNT INCREASED [None]
